FAERS Safety Report 16116771 (Version 1)
Quarter: 2019Q1

REPORT INFORMATION
  Report Type: Spontaneous
  Country: US (occurrence: US)
  Receive Date: 20190326
  Receipt Date: 20190326
  Transmission Date: 20190418
  Serious: Yes (Other)
  Sender: FDA-Public Use
  Company Number: US-APOTEX-2019AP010071

PATIENT

DRUGS (2)
  1. IMATINIB. [Suspect]
     Active Substance: IMATINIB MESYLATE
     Indication: GASTROINTESTINAL STROMAL TUMOUR
  2. IMATINIB. [Suspect]
     Active Substance: IMATINIB MESYLATE
     Indication: MASTOCYTOSIS
     Dosage: UNK
     Route: 065

REACTIONS (9)
  - Gastrointestinal haemorrhage [Unknown]
  - Fatigue [Unknown]
  - Jejunal ulcer [Unknown]
  - Pyrexia [Unknown]
  - Vomiting [Unknown]
  - Myalgia [Unknown]
  - Drug intolerance [Unknown]
  - Haemorrhage [Unknown]
  - Nausea [Unknown]
